FAERS Safety Report 16697178 (Version 2)
Quarter: 2019Q3

REPORT INFORMATION
  Report Type: Spontaneous
  Country: US (occurrence: US)
  Receive Date: 20190813
  Receipt Date: 20190827
  Transmission Date: 20191004
  Serious: No
  Sender: FDA-Public Use
  Company Number: US-PFIZER INC-2019345321

PATIENT
  Age: 76 Year
  Sex: Female
  Weight: 91.9 kg

DRUGS (14)
  1. DEMEROL [Suspect]
     Active Substance: MEPERIDINE HYDROCHLORIDE
     Dosage: UNK
  2. BENADRYL [Suspect]
     Active Substance: DIPHENHYDRAMINE HYDROCHLORIDE
     Dosage: UNK
  3. CODEINE [Suspect]
     Active Substance: CODEINE
     Dosage: UNK
  4. PNEUMOCOCCAL 13-VAL CONJ VAC (DIPHT CRM197 PROTEIN) [Suspect]
     Active Substance: PNEUMOCOCCAL 13-VALENT CONJUGATE VACCINE
     Indication: IMMUNISATION
     Dosage: SINGLE DOSE
  5. ROBITUSSIN (GUAIFENESIN) [Suspect]
     Active Substance: GUAIFENESIN
     Dosage: UNK
  6. INFLUENZA VACCINE [Suspect]
     Active Substance: INFLUENZA VIRUS VACCINE
     Indication: IMMUNISATION
     Dosage: UNK, SINGLE
  7. AVELOX [Suspect]
     Active Substance: MOXIFLOXACIN HYDROCHLORIDE
     Dosage: UNK
  8. LASIX [Suspect]
     Active Substance: FUROSEMIDE
     Dosage: UNK
  9. NEOSPORIN AF [Suspect]
     Active Substance: MICONAZOLE NITRATE
     Dosage: UNK
  10. DARVON [Suspect]
     Active Substance: PROPOXYPHENE HYDROCHLORIDE
     Dosage: UNK
  11. ERYTHROMYCIN. [Suspect]
     Active Substance: ERYTHROMYCIN
     Dosage: UNK
  12. PREDNISONE. [Suspect]
     Active Substance: PREDNISONE
     Dosage: UNK
  13. HYDROCODONE [Suspect]
     Active Substance: HYDROCODONE
     Dosage: UNK
  14. NOVOCAIN [Suspect]
     Active Substance: PROCAINE HYDROCHLORIDE

REACTIONS (1)
  - Drug hypersensitivity [Unknown]
